FAERS Safety Report 12401860 (Version 3)
Quarter: 2016Q3

REPORT INFORMATION
  Report Type: Spontaneous
  Country: US (occurrence: US)
  Receive Date: 20160525
  Receipt Date: 20160804
  Transmission Date: 20161109
  Serious: No
  Sender: FDA-Public Use
  Company Number: US-PFIZER INC-2016241953

PATIENT
  Age: 53 Year
  Sex: Female
  Weight: 47.63 kg

DRUGS (7)
  1. LYRICA [Suspect]
     Active Substance: PREGABALIN
     Dosage: 25 MG, UNK
     Route: 048
  2. BREO ELLIPTA [Concomitant]
     Active Substance: FLUTICASONE FUROATE\VILANTEROL TRIFENATATE
     Dosage: 100/25 MCG INHALE IT ONCE A DAY
  3. LYRICA [Suspect]
     Active Substance: PREGABALIN
     Indication: ARTHRITIS
     Dosage: 50 MG, ONE CAPSULE AT BREAKFAST AND TWO AT BED TIME
     Route: 048
     Dates: start: 201511
  4. HYDROCODONE [Suspect]
     Active Substance: HYDROCODONE
     Dosage: UNK
  5. PROAIR HFA [Concomitant]
     Active Substance: ALBUTEROL SULFATE
     Dosage: ONE PUFF, EVERY 4 HOURS
  6. LORATADINE. [Concomitant]
     Active Substance: LORATADINE
     Indication: ABDOMINAL DISCOMFORT
     Dosage: 50 MG, 1X/DAY
  7. HYDROCODONE [Suspect]
     Active Substance: HYDROCODONE
     Dosage: 10 MG/325, 4X/DAY

REACTIONS (5)
  - Bedridden [Unknown]
  - Somnolence [Not Recovered/Not Resolved]
  - Activities of daily living impaired [Unknown]
  - Product use issue [Unknown]
  - Drug intolerance [Unknown]

NARRATIVE: CASE EVENT DATE: 201511
